FAERS Safety Report 8908866 (Version 1)
Quarter: 2012Q4

REPORT INFORMATION
  Report Type: 
  Country: US (occurrence: US)
  Receive Date: 20121113
  Receipt Date: 20121113
  Transmission Date: 20130627
  Serious: No
  Sender: FDA-Public Use
  Company Number: US-AMGEN-USASP2012011774

PATIENT
  Age: 53 Year
  Sex: Male

DRUGS (6)
  1. ENBREL [Suspect]
     Indication: PRODUCT USED FOR UNKNOWN INDICATION
     Dosage: 50 mg, qwk
  2. METHOTREXATE [Concomitant]
     Dosage: 2.5 mg, UNK
  3. PREDNISONE [Concomitant]
     Dosage: 1 mg, UNK
  4. IBU [Concomitant]
     Dosage: 400 mg, UNK
  5. FOLIC ACID [Concomitant]
  6. ALLERGY AND SINUS [Concomitant]

REACTIONS (1)
  - Nasopharyngitis [Unknown]
